FAERS Safety Report 7853930-2 (Version None)
Quarter: 2011Q4

REPORT INFORMATION
  Report Type: 
  Country: None (occurrence: None)
  Receive Date: 20111026
  Receipt Date: 20111020
  Transmission Date: 20120403
  Serious: Yes (Other)
  Sender: FDA-Public Use
  Company Number: GB-PFIZER INC-2011254803

PATIENT

DRUGS (2)
  1. MORPHINE [Concomitant]
     Dosage: UNK
  2. PREGABALIN [Suspect]
     Dosage: UNK

REACTIONS (1)
  - RESPIRATORY ARREST [None]
